FAERS Safety Report 7146768-5 (Version None)
Quarter: 2010Q4

REPORT INFORMATION
  Report Type: 
  Country: None (occurrence: None)
  Receive Date: 20101209
  Receipt Date: 20100816
  Transmission Date: 20110411
  Serious: Yes (Death)
  Sender: FDA-Public Use
  Company Number: US-ACTELION-A-NJ2010-39090

PATIENT
  Sex: Female

DRUGS (3)
  1. BOSENTAN TABLET 62.5 MG US [Suspect]
     Indication: PULMONARY ARTERIAL HYPERTENSION
     Dosage: 62.5 MG, BID
     Route: 048
     Dates: start: 20080326
  2. BOSENTAN TABLET 62.5 MG US [Suspect]
     Dosage: 125 MG, BID
     Route: 048
     Dates: start: 20070705, end: 20080201
  3. BOSENTAN TABLET 62.5 MG US [Suspect]
     Dosage: 62.5 MG, BID
     Route: 048
     Dates: start: 20070601, end: 20070704

REACTIONS (1)
  - DEATH [None]
